FAERS Safety Report 7454515-2 (Version None)
Quarter: 2011Q2

REPORT INFORMATION
  Report Type: 
  Country: None (occurrence: None)
  Receive Date: 20110503
  Receipt Date: 20110421
  Transmission Date: 20111010
  Serious: No
  Sender: FDA-Public Use
  Company Number: PHHY2011US34442

PATIENT
  Sex: Male
  Weight: 83 kg

DRUGS (2)
  1. LIPITOR [Concomitant]
     Dosage: 10 MG, UNK
     Route: 048
  2. TASIGNA [Suspect]
     Indication: CHRONIC MYELOID LEUKAEMIA
     Dosage: 300 MG, BID
     Route: 048
     Dates: start: 20110401

REACTIONS (1)
  - SLEEP DISORDER [None]
